FAERS Safety Report 7339252-7 (Version None)
Quarter: 2011Q1

REPORT INFORMATION
  Report Type: 
  Country: None (occurrence: None)
  Receive Date: 20110308
  Receipt Date: 20110224
  Transmission Date: 20110831
  Serious: Yes (Hospitalization, Other)
  Sender: FDA-Public Use
  Company Number: US-ELI_LILLY_AND_COMPANY-US201008003500

PATIENT
  Sex: Female
  Weight: 61.678 kg

DRUGS (13)
  1. GEMFIBROZIL [Concomitant]
     Dosage: 600 MG, 2/D
  2. FORTEO [Suspect]
     Dosage: 20 UG, DAILY (1/D)
     Dates: start: 20100802
  3. CALTRATE +D [Concomitant]
     Dosage: 600 D/F, 2/D
  4. VITAMIN D [Concomitant]
     Dosage: 50000 MG, WEEKLY (1/W)
  5. PLAQUENIL [Concomitant]
     Dosage: 400 D/F, DAILY (1/D)
  6. METHOTREXATE [Concomitant]
  7. HYDROXYCHLOROQUINE [Concomitant]
  8. VICODIN [Concomitant]
     Dosage: 1 D/F, DAILY (1/D)
  9. TYLENOL (CAPLET) [Concomitant]
     Dosage: 1 D/F, AS NEEDED
  10. FORTEO [Suspect]
     Indication: OSTEOPOROSIS
     Dosage: 20 UG, DAILY (1/D)
     Dates: end: 20091009
  11. LISINOPRIL AND HYDROCHLOROTHIAZIDE [Concomitant]
     Dosage: 20 MG, DAILY (1/D)
  12. AMLODIPINE [Concomitant]
     Dosage: 5 MG, UNK
  13. PREDNISONE [Concomitant]
     Dosage: 3 D/F, DAILY (1/D)

REACTIONS (12)
  - FALL [None]
  - BONE DENSITY DECREASED [None]
  - DEVICE DISLOCATION [None]
  - WRIST FRACTURE [None]
  - ANKLE FRACTURE [None]
  - HYPOACUSIS [None]
  - ACNE [None]
  - DEVICE BREAKAGE [None]
  - PAIN [None]
  - SWELLING [None]
  - HIP FRACTURE [None]
  - STAPHYLOCOCCAL INFECTION [None]
